FAERS Safety Report 12857745 (Version 2)
Quarter: 2017Q3

REPORT INFORMATION
  Report Type: Spontaneous
  Country: GB (occurrence: GB)
  Receive Date: 20161018
  Receipt Date: 20170919
  Transmission Date: 20171127
  Serious: Yes (Other)
  Sender: FDA-Public Use
  Company Number: GB-LHC-2016150

PATIENT
  Age: 12 Year
  Sex: Female

DRUGS (2)
  1. NITROUS OXIDE (GENERIC) [Suspect]
     Active Substance: NITROUS OXIDE
  2. OXYGEN. [Concomitant]
     Active Substance: OXYGEN

REACTIONS (8)
  - Brain oedema [Recovered/Resolved]
  - Muscular weakness [Recovered/Resolved with Sequelae]
  - Neurotoxicity [Recovered/Resolved]
  - Leukoencephalopathy [Recovered/Resolved]
  - Disinhibition [Recovered/Resolved]
  - Generalised tonic-clonic seizure [Recovered/Resolved]
  - Drug interaction [Recovered/Resolved]
  - Agitation [Recovered/Resolved]
